FAERS Safety Report 16898971 (Version 1)
Quarter: 2019Q4

REPORT INFORMATION
  Report Type: Spontaneous
  Country: US (occurrence: US)
  Receive Date: 20191009
  Receipt Date: 20191009
  Transmission Date: 20200122
  Serious: No
  Sender: FDA-Public Use
  Company Number: US-PFIZER INC-2019434357

PATIENT
  Age: 55 Year
  Sex: Female

DRUGS (1)
  1. EFFEXOR XR [Suspect]
     Active Substance: VENLAFAXINE HYDROCHLORIDE
     Indication: BIPOLAR DISORDER
     Dosage: 150 MG, 1X/DAY
     Dates: start: 1999

REACTIONS (6)
  - Lip erythema [Unknown]
  - Chapped lips [Unknown]
  - Lip dry [Unknown]
  - Off label use [Unknown]
  - Product use in unapproved indication [Unknown]
  - Cheilitis [Unknown]
